FAERS Safety Report 9877687 (Version 1)
Quarter: 2014Q1

REPORT INFORMATION
  Report Type: Spontaneous
  Country: US (occurrence: None)
  Receive Date: 20140204
  Receipt Date: 20140204
  Transmission Date: 20141002
  Serious: Yes (Other)
  Sender: FDA-Public Use
  Company Number: 140036

PATIENT
  Age: 30 Year
  Sex: Female

DRUGS (1)
  1. SUPREP BOWEL PREP KIT [Suspect]
     Indication: COLONOSCOPY
     Dosage: 1 X 6 OZ. BOTTLE 1X PO
     Route: 048
     Dates: start: 20140128, end: 20140128

REACTIONS (4)
  - Drug hypersensitivity [None]
  - Rash generalised [None]
  - Urticaria [None]
  - Throat tightness [None]
